FAERS Safety Report 14236445 (Version 2)
Quarter: 2024Q3

REPORT INFORMATION
  Report Type: Spontaneous
  Country: FR (occurrence: FR)
  Receive Date: 20171129
  Receipt Date: 20240917
  Transmission Date: 20241016
  Serious: Yes (Other)
  Sender: MYLAN
  Company Number: FR-MYLANLABS-2017M1074863

PATIENT
  Age: 83 Year
  Sex: Male

DRUGS (10)
  1. PREDNISONE [Suspect]
     Active Substance: PREDNISONE
     Indication: Hodgkin^s disease
     Dosage: MINI-CHOP REGIMEN AND MOPP REGIMEN
     Route: 065
  2. DOXORUBICIN [Suspect]
     Active Substance: DOXORUBICIN
     Indication: Hodgkin^s disease
     Dosage: UNK, ABVD REGIMEN
     Route: 065
  3. BLEOMYCIN [Suspect]
     Active Substance: BLEOMYCIN SULFATE
     Indication: Hodgkin^s disease
     Dosage: UNK, ABVD REGIMEN
     Route: 065
  4. BRENTUXIMAB VEDOTIN [Suspect]
     Active Substance: BRENTUXIMAB VEDOTIN
     Indication: Hodgkin^s disease
     Dosage: UNK UNK, Q3W {75% OF STANDARD DOSE (IE, 1.35 MG/KG), EVERY 3 WEEKS}
     Route: 065
  5. CYCLOPHOSPHAMIDE [Suspect]
     Active Substance: CYCLOPHOSPHAMIDE
     Indication: Hodgkin^s disease
     Dosage: UNK, MINI-CHOP REGIMEN
     Route: 065
  6. VINCRISTINE [Suspect]
     Active Substance: VINCRISTINE
     Indication: Hodgkin^s disease
     Dosage: UNK, MINI-CHOP REGIMEN AND MOPP REGIMEN
     Route: 065
  7. VINBLASTINE [Suspect]
     Active Substance: VINBLASTINE
     Indication: Hodgkin^s disease
     Dosage: ABVD REGIMEN
     Route: 065
  8. DACARBAZINE [Suspect]
     Active Substance: DACARBAZINE
     Indication: Hodgkin^s disease
     Dosage: UNK, ABVD REGIMEN
     Route: 065
  9. PROCARBAZINE [Concomitant]
     Active Substance: PROCARBAZINE
     Indication: Hodgkin^s disease
     Dosage: UNK, MOPP REGIMEN
     Route: 065
  10. DOXORUBICIN [Concomitant]
     Active Substance: DOXORUBICIN
     Indication: Hodgkin^s disease
     Dosage: UNK, MINI-CHOP REGIMEN
     Route: 065

REACTIONS (4)
  - Cytomegalovirus chorioretinitis [Unknown]
  - Blindness [Unknown]
  - Neutropenia [Unknown]
  - Arthritis [Unknown]
